FAERS Safety Report 5584052-1 (Version None)
Quarter: 2008Q1

REPORT INFORMATION
  Report Type: 
  Country: None (occurrence: None)
  Receive Date: 20080108
  Receipt Date: 20080102
  Transmission Date: 20080703
  Serious: Yes (Other)
  Sender: FDA-Public Use
  Company Number: US-ROCHE-535912

PATIENT
  Sex: Female

DRUGS (1)
  1. BONIVA [Suspect]
     Indication: OSTEOPOROSIS
     Dosage: ONE IN JULY 2007, ONE IN SEPTEMBER 2007
     Route: 042
     Dates: start: 20070701, end: 20071220

REACTIONS (5)
  - CHEST DISCOMFORT [None]
  - DYSPHONIA [None]
  - HEADACHE [None]
  - MYALGIA [None]
  - RASH [None]
